FAERS Safety Report 14350240 (Version 2)
Quarter: 2018Q4

REPORT INFORMATION
  Report Type: Spontaneous
  Country: US (occurrence: US)
  Receive Date: 20180104
  Receipt Date: 20181226
  Transmission Date: 20190204
  Serious: No
  Sender: FDA-Public Use
  Company Number: US-PFIZER INC-2018003394

PATIENT
  Sex: Female
  Weight: 81.65 kg

DRUGS (7)
  1. CODEINE [Concomitant]
     Active Substance: CODEINE
     Dosage: UNK
  2. XELJANZ [Suspect]
     Active Substance: TOFACITINIB CITRATE
     Indication: COLLAGEN-VASCULAR DISEASE
     Dosage: 5 MG, UNK
  3. NORCO [Concomitant]
     Active Substance: ACETAMINOPHEN\HYDROCODONE BITARTRATE
     Dosage: 30 MG, DAILY
  4. HICET [Concomitant]
     Indication: HEADACHE
     Dosage: 15 MG, DAILY
     Route: 048
  5. NORCO [Concomitant]
     Active Substance: ACETAMINOPHEN\HYDROCODONE BITARTRATE
     Indication: PAIN
     Dosage: UNK (10 TABLET BY MOUTH 1/2 EVERY 3 HOURS)
     Route: 048
  6. HICET [Concomitant]
     Indication: PAIN
  7. XELJANZ [Suspect]
     Active Substance: TOFACITINIB CITRATE
     Indication: FIBROMYALGIA
     Dosage: 5 MG, 2X/DAY
     Route: 048
     Dates: start: 20181204

REACTIONS (3)
  - Diarrhoea [Unknown]
  - Product use in unapproved indication [Unknown]
  - Aphonia [Unknown]

NARRATIVE: CASE EVENT DATE: 20181204
